FAERS Safety Report 19483517 (Version 1)
Quarter: 2021Q3

REPORT INFORMATION
  Report Type: Spontaneous
  Country: CN (occurrence: CN)
  Receive Date: 20210701
  Receipt Date: 20210701
  Transmission Date: 20211014
  Serious: Yes (Other)
  Sender: FDA-Public Use
  Company Number: CN-PFIZER INC-2021727394

PATIENT
  Age: 78 Year
  Sex: Female
  Weight: 63 kg

DRUGS (2)
  1. TAZOCIN [Suspect]
     Active Substance: PIPERACILLIN SODIUM\TAZOBACTAM SODIUM
     Dosage: 4.5 G, 2X/DAY (EVERY 12 HOURS)
     Route: 041
     Dates: start: 20210326, end: 20210327
  2. TAZOCIN [Suspect]
     Active Substance: PIPERACILLIN SODIUM\TAZOBACTAM SODIUM
     Indication: BACTERIAL INFECTION
     Dosage: 4.5 G, 2X/DAY (EVERY 12 HOURS)
     Route: 041
     Dates: start: 20210217, end: 20210303

REACTIONS (4)
  - Muscle rigidity [Recovering/Resolving]
  - Depressed level of consciousness [Recovering/Resolving]
  - Epilepsy [Recovering/Resolving]
  - Foaming at mouth [Recovering/Resolving]

NARRATIVE: CASE EVENT DATE: 20210326
